FAERS Safety Report 6409516-X (Version None)
Quarter: 2009Q4

REPORT INFORMATION
  Report Type: 
  Country: None (occurrence: None)
  Receive Date: 20091016
  Receipt Date: 20091006
  Transmission Date: 20100525
  Serious: Yes (Other)
  Sender: FDA-Public Use
  Company Number: 2009US000570

PATIENT
  Age: 18 Year
  Sex: Female
  Weight: 56.7 kg

DRUGS (9)
  1. PROGRAF [Suspect]
     Indication: LIVER TRANSPLANT
     Dosage: 3 MG, BID, ORAL
     Route: 048
  2. CELLCEPT [Concomitant]
  3. PRENATAL VITAMINS (TOCOPHEROL, NICOTINE ACID, VITAMIND NOS, MINERALS N [Concomitant]
  4. ANTIBIOTICS [Concomitant]
  5. PREVACID [Concomitant]
  6. CYTOVENE [Concomitant]
  7. LITHIUM CARBONATE [Concomitant]
  8. RISPERDAL [Concomitant]
  9. SEPTRA [Concomitant]

REACTIONS (6)
  - CAESAREAN SECTION [None]
  - DRUG EXPOSURE DURING PREGNANCY [None]
  - GRAFT LOSS [None]
  - PREMATURE LABOUR [None]
  - TRANSPLANT REJECTION [None]
  - URINARY TRACT INFECTION [None]
